FAERS Safety Report 4604679-0 (Version None)
Quarter: 2005Q2

REPORT INFORMATION
  Report Type: 
  Country: None (occurrence: None)
  Receive Date: 20050223
  Receipt Date: 20041115
  Transmission Date: 20051028
  Serious: No
  Sender: FDA-Public Use
  Company Number: PHEH2004US12298

PATIENT
  Age: 87 Year
  Sex: Female

DRUGS (3)
  1. ZELNOMR (TEGASEROD) TABLET, 6 MG [Suspect]
     Indication: IRRITABLE BOWEL SYNDROME
     Dosage: 6 MG, BID
     Dates: start: 20041112
  2. MILK OF MAGNESIA (MAGNESIUM HYDROXIDE) [Concomitant]
  3. METAMUCIL ^PROCTER + GAMBLE^ (GLUCOSE MONOHYDRATE, ISAGHULA HUSK, PLAN [Concomitant]

REACTIONS (2)
  - CONDITION AGGRAVATED [None]
  - DYSURIA [None]
